FAERS Safety Report 8849894 (Version 1)
Quarter: 2012Q4

REPORT INFORMATION
  Report Type: 
  Country: US (occurrence: US)
  Receive Date: 20121019
  Receipt Date: 20121019
  Transmission Date: 20130627
  Serious: Yes (Other)
  Sender: FDA-Public Use
  Company Number: US-ROCHE-GNE028108

PATIENT
  Age: 2 Year
  Sex: Male
  Weight: 21.82 kg

DRUGS (4)
  1. PROTROPIN [Suspect]
     Route: 058
     Dates: start: 19930520, end: 19950922
  2. NUTROPIN [Suspect]
     Indication: DWARFISM
     Route: 065
  3. VALPROIC ACID [Concomitant]
  4. ALBUTEROL [Concomitant]

REACTIONS (4)
  - Pituitary tumour benign [Recovering/Resolving]
  - Brain neoplasm [Unknown]
  - Epistaxis [Unknown]
  - Malaise [Unknown]
